FAERS Safety Report 25739402 (Version 2)
Quarter: 2025Q3

REPORT INFORMATION
  Report Type: Spontaneous
  Country: CH (occurrence: CH)
  Receive Date: 20250829
  Receipt Date: 20250911
  Transmission Date: 20251020
  Serious: Yes (Other)
  Sender: RANBAXY
  Company Number: CH-SUN PHARMACEUTICAL INDUSTRIES LTD-2025R1-524490

PATIENT
  Age: 32 Year
  Sex: Female

DRUGS (5)
  1. CLOTRIMAZOLE [Suspect]
     Active Substance: CLOTRIMAZOLE
     Indication: Vulvovaginal mycotic infection
     Route: 065
  2. ECONAZOLE [Suspect]
     Active Substance: ECONAZOLE
     Indication: Vulvovaginal mycotic infection
     Route: 065
  3. FLUCONAZOLE [Suspect]
     Active Substance: FLUCONAZOLE
     Indication: Vulvovaginal mycotic infection
     Route: 065
  4. DEQUALINIUM CHLORIDE [Suspect]
     Active Substance: DEQUALINIUM CHLORIDE
     Indication: Vulvovaginal mycotic infection
     Route: 065
  5. HEXETIDINE [Suspect]
     Active Substance: HEXETIDINE
     Indication: Vulvovaginal mycotic infection
     Route: 065

REACTIONS (3)
  - Therapy non-responder [Unknown]
  - Drug resistance [Unknown]
  - Candida infection [Recovering/Resolving]
